FAERS Safety Report 9541936 (Version 1)
Quarter: 2013Q3

REPORT INFORMATION
  Report Type: Spontaneous
  Country: US (occurrence: None)
  Receive Date: 20130919
  Receipt Date: 20130919
  Transmission Date: 20140515
  Serious: No
  Sender: FDA-Public Use
  Company Number: None

PATIENT
  Age: 61 Year
  Sex: Female
  Weight: 82.56 kg

DRUGS (1)
  1. NOSTRILLA NASAL SPRAY [Suspect]
     Indication: MULTIPLE ALLERGIES
     Dates: start: 20130913, end: 20130914

REACTIONS (2)
  - Nasal discomfort [None]
  - Product quality issue [None]
